FAERS Safety Report 14898819 (Version 2)
Quarter: 2018Q2

REPORT INFORMATION
  Report Type: Spontaneous
  Country: US (occurrence: US)
  Receive Date: 20180515
  Receipt Date: 20180608
  Transmission Date: 20180711
  Serious: Yes (Hospitalization, Other)
  Sender: FDA-Public Use
  Company Number: US-009507513-1805USA005911

PATIENT
  Age: 22 Year
  Sex: Female
  Weight: 44.9 kg

DRUGS (10)
  1. PROVENTIL [Concomitant]
     Active Substance: ALBUTEROL
     Dosage: 2 PUFFS, UNK, ACTUATION AEROSOL
     Route: 055
     Dates: start: 20170926
  2. NEXPLANON [Suspect]
     Active Substance: ETONOGESTREL
     Indication: CONTRACEPTION
     Dosage: 68 MG, ONE TIME, IN LEFT ARM
     Route: 059
     Dates: start: 20150509, end: 20180530
  3. PROAIR HFA [Concomitant]
     Active Substance: ALBUTEROL SULFATE
     Dosage: 2 PUFFS, UNK, ACTUATION AEROSOL INHALER
     Route: 055
     Dates: start: 20170926
  4. MOTRIN [Concomitant]
     Active Substance: IBUPROFEN
     Indication: PAIN
     Dosage: 1 TABLET (800 MG) Q8H AS NEEDED
     Route: 048
     Dates: start: 20180501
  5. VENTOLIN [Concomitant]
     Active Substance: ALBUTEROL SULFATE
     Dosage: 2 PUFFS, UNK, ACTUATION AEROSOL INHALER
     Route: 055
     Dates: start: 20170926
  6. ZYRTEC [Concomitant]
     Active Substance: CETIRIZINE HYDROCHLORIDE
     Dosage: TAKE 10  MG BY MOUTH
     Route: 048
     Dates: start: 20170926
  7. EPIPEN [Concomitant]
     Active Substance: EPINEPHRINE
     Dosage: STRENGTH 0.3 MG/0.3 ML; INJECT 0.3 MG INTO THE SHOULDER, THIGH OR BUTTOCKS
     Dates: start: 20151103
  8. FLONASE [Concomitant]
     Active Substance: FLUTICASONE PROPIONATE
     Dosage: 2 SPRAYS INTO EACH NOSTRIL
     Route: 045
     Dates: start: 20170404
  9. FLOVENT HFA [Concomitant]
     Active Substance: FLUTICASONE PROPIONATE
     Dosage: INHALE 2 PUFFS
     Route: 055
     Dates: start: 20170926
  10. VITAMINS (UNSPECIFIED) [Concomitant]
     Active Substance: VITAMINS
     Dosage: 1 TABLET BY MOUTH
     Route: 048
     Dates: start: 20170404

REACTIONS (11)
  - Body height below normal [Unknown]
  - Incorrect drug administration duration [Unknown]
  - Myofascial pain syndrome [Unknown]
  - Hypersensitivity [Unknown]
  - Abortion spontaneous [Unknown]
  - Implant site pain [Recovered/Resolved]
  - Visual impairment [Unknown]
  - Arthralgia [Unknown]
  - Asthma [Unknown]
  - Depression [Unknown]
  - Anxiety [Unknown]

NARRATIVE: CASE EVENT DATE: 20180510
